FAERS Safety Report 4781090-3 (Version None)
Quarter: 2005Q3

REPORT INFORMATION
  Report Type: 
  Country: None (occurrence: None)
  Receive Date: 20050926
  Receipt Date: 20050907
  Transmission Date: 20060218
  Serious: Yes (Other)
  Sender: FDA-Public Use
  Company Number: ATO-05-0279

PATIENT
  Age: 72 Year
  Sex: Male

DRUGS (9)
  1. TRISENOX [Suspect]
     Indication: ACUTE PROMYELOCYTIC LEUKAEMIA
     Dosage: 6 MG (6 MG, IVI)
     Route: 042
     Dates: start: 20050209, end: 20050405
  2. BIAPENEM [Concomitant]
  3. VANCOMYCIN [Concomitant]
  4. CLINDAMYCIN [Concomitant]
  5. CEFTAZIDIME [Concomitant]
  6. ALLOPURINOL [Concomitant]
  7. TOSUFOXACIN [Concomitant]
  8. FLUCONAZOLE [Concomitant]
  9. FAMOTIDINE [Concomitant]

REACTIONS (8)
  - ALANINE AMINOTRANSFERASE INCREASED [None]
  - ASPARTATE AMINOTRANSFERASE INCREASED [None]
  - BLOOD ALKALINE PHOSPHATASE INCREASED [None]
  - BLOOD LACTATE DEHYDROGENASE INCREASED [None]
  - CONDITION AGGRAVATED [None]
  - GAMMA-GLUTAMYLTRANSFERASE INCREASED [None]
  - HEPATIC FUNCTION ABNORMAL [None]
  - HYPOKALAEMIA [None]
